FAERS Safety Report 9193947 (Version 2)
Quarter: 2013Q2

REPORT INFORMATION
  Report Type: Spontaneous
  Country: US (occurrence: US)
  Receive Date: 20130327
  Receipt Date: 20130423
  Transmission Date: 20140414
  Serious: Yes (Other)
  Sender: FDA-Public Use
  Company Number: CHPA2013US005184

PATIENT
  Age: 39 Year
  Sex: Male

DRUGS (11)
  1. GAS-X UNKNOWN THIN STRIP [Suspect]
     Indication: FLATULENCE
     Dosage: 2 TO 6 DF, QD
     Route: 048
  2. OMEPRAZOLE [Concomitant]
     Indication: GASTROOESOPHAGEAL REFLUX DISEASE
     Dosage: UNK, UNK
     Dates: start: 20110307
  3. RANITIDINE [Concomitant]
     Indication: DIVERTICULITIS
     Dates: start: 20110307
  4. LISINOPRIL [Concomitant]
     Indication: HYPERTENSION
  5. VITAMIN D3 [Concomitant]
     Indication: SUPPLEMENTATION THERAPY
  6. VITAMIN B12 [Concomitant]
     Indication: VITAMIN B COMPLEX DEFICIENCY
     Route: 048
     Dates: start: 2011
  7. NORCO [Concomitant]
     Indication: POST-TRAUMATIC STRESS DISORDER
     Dosage: 5 MG, Q8H
     Dates: start: 201109
  8. NORCO [Concomitant]
     Indication: ANXIETY
  9. CLONAZEPAM [Concomitant]
     Indication: POST-TRAUMATIC STRESS DISORDER
  10. CLONAZEPAM [Concomitant]
     Indication: ANXIETY
  11. PERCOCET [Concomitant]
     Indication: INTERVERTEBRAL DISC PROTRUSION

REACTIONS (8)
  - Chronic obstructive pulmonary disease [Not Recovered/Not Resolved]
  - Diverticulitis [Not Recovered/Not Resolved]
  - Abdominal pain upper [Not Recovered/Not Resolved]
  - Abdominal distension [Not Recovered/Not Resolved]
  - Lethargy [Not Recovered/Not Resolved]
  - Condition aggravated [Not Recovered/Not Resolved]
  - Therapeutic response unexpected [Unknown]
  - Wrong technique in drug usage process [None]
